FAERS Safety Report 7753955-1 (Version None)
Quarter: 2011Q3

REPORT INFORMATION
  Report Type: 
  Country: None (occurrence: None)
  Receive Date: 20110915
  Receipt Date: 20110906
  Transmission Date: 20111222
  Serious: Yes (Hospitalization, Other)
  Sender: FDA-Public Use
  Company Number: US-ASTRAZENECA-2010SE03794

PATIENT
  Age: 17237 Day
  Sex: Male
  Weight: 93.9 kg

DRUGS (6)
  1. FLUOXETINE [Concomitant]
     Indication: DEPRESSION
     Route: 048
  2. CELEBREX [Concomitant]
     Indication: ARTHRALGIA
     Route: 048
  3. PRILOSEC [Suspect]
     Route: 048
  4. NEXIUM [Suspect]
     Indication: GASTROOESOPHAGEAL REFLUX DISEASE
     Route: 048
     Dates: start: 20080422, end: 20090923
  5. PRILOSEC OTC [Suspect]
     Route: 048
  6. AMBIEN [Concomitant]
     Indication: INSOMNIA
     Route: 048

REACTIONS (12)
  - GASTROOESOPHAGEAL REFLUX DISEASE [None]
  - CONCUSSION [None]
  - DRUG INEFFECTIVE [None]
  - EROSIVE OESOPHAGITIS [None]
  - DRUG DOSE OMISSION [None]
  - HEAD INJURY [None]
  - FALL [None]
  - DYSPEPSIA [None]
  - EATING DISORDER [None]
  - OESOPHAGEAL OEDEMA [None]
  - ACCIDENT AT WORK [None]
  - INSOMNIA [None]
